FAERS Safety Report 4767351-2 (Version None)
Quarter: 2005Q3

REPORT INFORMATION
  Report Type: 
  Country: None (occurrence: None)
  Receive Date: 20050913
  Receipt Date: 20050902
  Transmission Date: 20060218
  Serious: Yes (Other)
  Sender: FDA-Public Use
  Company Number: BE-BRISTOL-MYERS SQUIBB COMPANY-13097878

PATIENT
  Age: 63 Year
  Sex: Female

DRUGS (2)
  1. TAXOL [Suspect]
     Indication: VULVAL CANCER
     Dates: start: 20020305, end: 20020613
  2. DUPHALAC [Concomitant]

REACTIONS (3)
  - CACHEXIA [None]
  - LYMPHOEDEMA [None]
  - NEUROPATHY PERIPHERAL [None]
